FAERS Safety Report 5897843-4 (Version None)
Quarter: 2008Q3

REPORT INFORMATION
  Report Type: 
  Country: None (occurrence: None)
  Receive Date: 20080925
  Receipt Date: 20080915
  Transmission Date: 20090109
  Serious: Yes (Other)
  Sender: FDA-Public Use
  Company Number: US-JNJFOC-20080606936

PATIENT
  Sex: Female
  Weight: 49.4 kg

DRUGS (3)
  1. REMICADE [Suspect]
     Indication: CROHN'S DISEASE
     Route: 042
  2. IMURAN [Concomitant]
     Indication: CROHN'S DISEASE
     Dosage: FOR 4 YEARS
  3. ASACOL [Concomitant]
     Indication: CROHN'S DISEASE
     Dosage: FOR 6 YEARS

REACTIONS (3)
  - CENTRAL NERVOUS SYSTEM LESION [None]
  - INTRACRANIAL PRESSURE INCREASED [None]
  - PAPILLOEDEMA [None]
